FAERS Safety Report 15968381 (Version 1)
Quarter: 2019Q1

REPORT INFORMATION
  Report Type: Spontaneous
  Country: US (occurrence: US)
  Receive Date: 20190215
  Receipt Date: 20190215
  Transmission Date: 20190418
  Serious: Yes (Other)
  Sender: FDA-Public Use
  Company Number: US-FRESENIUS KABI-FK201901656

PATIENT
  Age: 49 Year
  Sex: Male

DRUGS (3)
  1. NO DRUG NAME [Suspect]
     Active Substance: UNSPECIFIED INGREDIENT
     Indication: X-RAY
     Dosage: WATER SOLUBLE, IODINE-BASED CONTRAST
     Route: 008
  2. DEXAMETHASONE INJECTION (MANUFACTURER UNKNOWN) [Suspect]
     Active Substance: DEXAMETHASONE
     Indication: RADICULAR PAIN
     Route: 008
  3. LIDOCAINE (MANUFACTURER UNKNOWN) [Suspect]
     Active Substance: LIDOCAINE
     Indication: RADICULAR PAIN
     Route: 008

REACTIONS (6)
  - Intentional product use issue [Recovered/Resolved]
  - Nerve root injury [Recovered/Resolved]
  - Muscular weakness [Recovered/Resolved]
  - Product administration error [Recovered/Resolved]
  - Pollakiuria [Recovered/Resolved]
  - Peroneal nerve palsy [Recovered/Resolved]
